FAERS Safety Report 8978576 (Version 1)
Quarter: 2012Q4

REPORT INFORMATION
  Report Type: 
  Country: US (occurrence: US)
  Receive Date: 20121220
  Receipt Date: 20121220
  Transmission Date: 20130627
  Serious: Yes (Death, Other)
  Sender: FDA-Public Use
  Company Number: US-WATSON-2012-22155

PATIENT
  Age: 38 Year
  Sex: Male
  Weight: 79 kg

DRUGS (1)
  1. RAPAFLO (WATSON LABORATORIES) [Suspect]
     Indication: MICTURITION URGENCY
     Dosage: UNK
     Route: 048
     Dates: start: 20121108, end: 20121111

REACTIONS (1)
  - Anaphylactic reaction [Fatal]
